FAERS Safety Report 19777074 (Version 1)
Quarter: 2021Q3

REPORT INFORMATION
  Report Type: Spontaneous
  Country: US (occurrence: US)
  Receive Date: 20210902
  Receipt Date: 20210902
  Transmission Date: 20211014
  Serious: Yes (Hospitalization, Other)
  Sender: FDA-Public Use
  Company Number: US-JNJFOC-20210846271

PATIENT
  Age: 60 Year
  Sex: Female

DRUGS (2)
  1. NEUTROGENA ULTRA SHEER BODY MIST SUNSCREEN BROAD SPECTRUM 70 (AVO\HOM\OCTI\OCTO) [Suspect]
     Active Substance: AVOBENZONE\HOMOSALATE\OCTISALATE\OCTOCRYLENE
     Indication: PROPHYLAXIS AGAINST SOLAR RADIATION
     Dosage: LIBERALLY ALL OVER BODY TO PROTECT SKIN EVERY DAY
     Route: 061
     Dates: start: 1970
  2. JOHNSONS BABY POWDER (TALC) [Suspect]
     Active Substance: TALC
     Indication: SKIN DISORDER PROPHYLAXIS
     Route: 061
     Dates: end: 2020

REACTIONS (2)
  - Bone disorder [Unknown]
  - Breast cancer [Unknown]

NARRATIVE: CASE EVENT DATE: 2015
